FAERS Safety Report 13381304 (Version 1)
Quarter: 2017Q1

REPORT INFORMATION
  Report Type: Spontaneous
  Country: US (occurrence: US)
  Receive Date: 20170329
  Receipt Date: 20170329
  Transmission Date: 20170429
  Serious: No
  Sender: FDA-Public Use
  Company Number: US-MYLANLABS-2016M1055250

PATIENT
  Sex: Female
  Weight: 54.42 kg

DRUGS (1)
  1. CELECOXIB. [Suspect]
     Active Substance: CELECOXIB
     Indication: OSTEOARTHRITIS
     Dosage: 200 MG, QD
     Route: 048
     Dates: start: 20161124

REACTIONS (4)
  - Drug ineffective [Not Recovered/Not Resolved]
  - Oedema peripheral [Not Recovered/Not Resolved]
  - Muscular weakness [Not Recovered/Not Resolved]
  - Unevaluable event [Not Recovered/Not Resolved]
